FAERS Safety Report 9386627 (Version 1)
Quarter: 2013Q3

REPORT INFORMATION
  Report Type: Spontaneous
  Country: GB (occurrence: GB)
  Receive Date: 20130708
  Receipt Date: 20130708
  Transmission Date: 20140515
  Serious: Yes (Hospitalization)
  Sender: FDA-Public Use
  Company Number: PHFR2013GB003808

PATIENT
  Age: 71 Year
  Sex: Female
  Weight: 90 kg

DRUGS (3)
  1. TEGRETOL [Suspect]
     Indication: TRIGEMINAL NEURALGIA
     Dosage: 100 MG, PRN
     Route: 048
     Dates: start: 201109
  2. TEGRETOL [Suspect]
     Dosage: 1300MG DAILY
     Route: 048
     Dates: start: 201303, end: 201306
  3. BACLOFEN [Concomitant]

REACTIONS (9)
  - Gastrointestinal disorder [Unknown]
  - Vertigo [Recovered/Resolved]
  - Abasia [Unknown]
  - Balance disorder [Unknown]
  - Vision blurred [Recovered/Resolved]
  - Malaise [Recovered/Resolved]
  - Nausea [Recovered/Resolved]
  - Constipation [Recovered/Resolved]
  - Diarrhoea [Recovered/Resolved]
